FAERS Safety Report 9592395 (Version 1)
Quarter: 2013Q4

REPORT INFORMATION
  Report Type: Spontaneous
  Country: US (occurrence: None)
  Receive Date: 20131003
  Receipt Date: 20131003
  Transmission Date: 20140711
  Serious: Yes (Life-Threatening, Hospitalization)
  Sender: FDA-Public Use
  Company Number: None

PATIENT
  Sex: 0

DRUGS (1)
  1. TACROLIMUS [Suspect]

REACTIONS (3)
  - Transplant failure [None]
  - Drug level changed [None]
  - Immune system disorder [None]
